FAERS Safety Report 12671073 (Version 2)
Quarter: 2016Q3

REPORT INFORMATION
  Report Type: Spontaneous
  Country: US (occurrence: US)
  Receive Date: 20160822
  Receipt Date: 20160917
  Transmission Date: 20161109
  Serious: Yes (Other)
  Sender: FDA-Public Use
  Company Number: US-AUROBINDO-AUR-APL-2016-10454

PATIENT
  Age: 12 Year
  Sex: Male

DRUGS (1)
  1. PREDNISONE. [Suspect]
     Active Substance: PREDNISONE
     Indication: PRODUCT USED FOR UNKNOWN INDICATION
     Dosage: 8 MG/M2 BSA/DAY
     Route: 065

REACTIONS (6)
  - Osteoporosis [Recovered/Resolved]
  - Vitamin D decreased [Recovered/Resolved]
  - Spinal fracture [Recovered/Resolved]
  - Back pain [Recovered/Resolved]
  - Bone density decreased [Recovered/Resolved]
  - Cushing^s syndrome [Recovered/Resolved]
